FAERS Safety Report 6292284-2 (Version None)
Quarter: 2009Q3

REPORT INFORMATION
  Report Type: 
  Country: None (occurrence: None)
  Receive Date: 20090730
  Receipt Date: 20090730
  Transmission Date: 20100115
  Serious: Yes (Other)
  Sender: FDA-Public Use
  Company Number: None

PATIENT
  Sex: Female
  Weight: 87.5442 kg

DRUGS (2)
  1. NAPROSYN [Suspect]
     Indication: OSTEOARTHRITIS
     Dosage: 500 MG BID PO
     Route: 048
     Dates: start: 20060101
  2. NAPROSYN [Suspect]
     Indication: OSTEOARTHRITIS
     Dosage: 500 MG BID PO
     Route: 048
     Dates: start: 20080101

REACTIONS (2)
  - HALLUCINATION [None]
  - NIGHTMARE [None]
